FAERS Safety Report 7252474-9 (Version None)
Quarter: 2011Q1

REPORT INFORMATION
  Report Type: 
  Country: None (occurrence: None)
  Receive Date: 20110129
  Receipt Date: 20110117
  Transmission Date: 20110831
  Serious: Yes (Life-Threatening, Hospitalization, Other)
  Sender: FDA-Public Use
  Company Number: DE-AMGEN-DEUCT2010009010

PATIENT
  Age: 63 Year
  Sex: Male
  Weight: 85 kg

DRUGS (12)
  1. ETANERCEPT [Suspect]
     Indication: ANKYLOSING SPONDYLITIS
     Dosage: 25 MG, 2X/DAY
     Route: 058
     Dates: start: 20100310, end: 20101112
  2. RAMIPRIL [Concomitant]
     Indication: HYPERTENSION
     Dosage: UNK MG, UNK
  3. ALLOPURINOL [Concomitant]
     Indication: HYPERURICAEMIA
     Dosage: 300 MG, UNK
  4. TEBONIN [Concomitant]
     Indication: BRAIN INJURY
  5. METFORMIN [Concomitant]
     Indication: TYPE 2 DIABETES MELLITUS
     Dosage: UNK MG, UNK
  6. NOVOTHYRAL [Concomitant]
     Indication: GOITRE
  7. CIPRALEX [Concomitant]
     Indication: DEPRESSION
     Dosage: 10 MG, UNK
  8. ETANERCEPT [Suspect]
     Indication: PRODUCT USED FOR UNKNOWN INDICATION
  9. CO-DIOVAN [Concomitant]
     Indication: HYPERTENSION
     Dosage: 25/160 MG, UNK
  10. DILATREND [Concomitant]
     Indication: HYPERTENSION
     Dosage: 12.5 MG, UNK
  11. KELTICAN N [Concomitant]
     Indication: BRAIN INJURY
  12. AQUAPHOR TABLET [Concomitant]
     Indication: HYPERURICAEMIA
     Dosage: 10 MG, UNK

REACTIONS (2)
  - RENAL CELL CARCINOMA [None]
  - THYROID CANCER [None]
